FAERS Safety Report 14993315 (Version 1)
Quarter: 2018Q2

REPORT INFORMATION
  Report Type: Spontaneous
  Country: BR (occurrence: BR)
  Receive Date: 20180610
  Receipt Date: 20180610
  Transmission Date: 20180711
  Serious: Yes (Death)
  Sender: FDA-Public Use
  Company Number: PHHY2018BR018418

PATIENT
  Age: 34 Year
  Sex: Male

DRUGS (1)
  1. PREDNISONE. [Suspect]
     Active Substance: PREDNISONE
     Indication: COUGH
     Dosage: 40 MG, QD
     Route: 065

REACTIONS (6)
  - Meningism [Fatal]
  - Brain herniation [Fatal]
  - Intracranial pressure increased [Fatal]
  - Meningitis [Fatal]
  - Disseminated tuberculosis [Fatal]
  - Tuberculosis [Fatal]
